FAERS Safety Report 24767550 (Version 1)
Quarter: 2024Q4

REPORT INFORMATION
  Report Type: Spontaneous
  Country: US (occurrence: US)
  Receive Date: 20241223
  Receipt Date: 20241223
  Transmission Date: 20250114
  Serious: Yes (Death)
  Sender: PFIZER
  Company Number: US-PFIZER INC-202400330754

PATIENT
  Age: 58 Year
  Sex: Female

DRUGS (1)
  1. TUKYSA [Suspect]
     Active Substance: TUCATINIB
     Dosage: UNK
     Dates: end: 20240908

REACTIONS (1)
  - Death [Fatal]

NARRATIVE: CASE EVENT DATE: 20240908
